FAERS Safety Report 21596048 (Version 1)
Quarter: 2022Q4

REPORT INFORMATION
  Report Type: Spontaneous
  Country: CA (occurrence: CA)
  Receive Date: 20221115
  Receipt Date: 20221115
  Transmission Date: 20230113
  Serious: Yes (Other)
  Sender: FDA-Public Use
  Company Number: CA-BAYER-2021-209721

PATIENT
  Sex: Female

DRUGS (2)
  1. EYLEA [Suspect]
     Active Substance: AFLIBERCEPT
     Indication: Product used for unknown indication
     Dosage: 1 DF, ONCE, OD, SOLUTION FOR INJECTION IN PRE-FILLED SYRINGE
  2. EYLEA [Suspect]
     Active Substance: AFLIBERCEPT
     Dosage: 1DF,ONCE,OD;TOTAL OF 2 DOSES RECEIVED PRIOR TO THE EVENT,SOLUTION FOR INJECTION IN PREFILLED SYRINGE
     Dates: start: 20210616, end: 20210616

REACTIONS (5)
  - Visual acuity reduced [Recovered/Resolved]
  - Vitreal cells [Recovered/Resolved]
  - Anterior chamber cell [Recovered/Resolved]
  - Iritis [Recovered/Resolved]
  - Uveitis [Recovered/Resolved]

NARRATIVE: CASE EVENT DATE: 20210618
